FAERS Safety Report 12181077 (Version 1)
Quarter: 2016Q1

REPORT INFORMATION
  Report Type: Other
  Country: TH (occurrence: TH)
  Receive Date: 20160315
  Receipt Date: 20160315
  Transmission Date: 20160526
  Serious: Yes (Death)
  Sender: FDA-Public Use
  Company Number: TH-B. BRAUN MEDICAL INC.-1049108

PATIENT
  Age: 50 Year
  Sex: Female

DRUGS (11)
  1. EPINEPHRINE. [Concomitant]
     Active Substance: EPINEPHRINE
  2. CEFAZOLIN SODIUM. [Suspect]
     Active Substance: CEFAZOLIN SODIUM
     Indication: ANTIBIOTIC PROPHYLAXIS
     Route: 042
  3. LIDOCAINE. [Concomitant]
     Active Substance: LIDOCAINE
  4. FENTANYL. [Concomitant]
     Active Substance: FENTANYL
  5. DOPAMINE [Concomitant]
     Active Substance: DOPAMINE\DOPAMINE HYDROCHLORIDE
  6. CISATRACURIUM. [Concomitant]
     Active Substance: CISATRACURIUM
  7. NOREPINEPHRINE [Concomitant]
     Active Substance: NOREPINEPHRINE\NOREPINEPHRINE BITARTRATE
  8. PROPOFOL. [Concomitant]
     Active Substance: PROPOFOL
  9. DESFLURANE. [Concomitant]
     Active Substance: DESFLURANE
  10. MANNITOL. [Concomitant]
     Active Substance: MANNITOL
  11. DOBUTAMINE [Concomitant]
     Active Substance: DOBUTAMINE\DOBUTAMINE HYDROCHLORIDE

REACTIONS (4)
  - Anaphylactic reaction [None]
  - Hypertensive crisis [None]
  - Metabolic acidosis [None]
  - Brain oedema [None]
